FAERS Safety Report 5370138-3 (Version None)
Quarter: 2007Q2

REPORT INFORMATION
  Report Type: 
  Country: None (occurrence: None)
  Receive Date: 20070614
  Receipt Date: 20070511
  Transmission Date: 20071010
  Serious: Yes (Hospitalization)
  Sender: FDA-Public Use
  Company Number: BDI-009544

PATIENT
  Age: 61 Year
  Sex: Female

DRUGS (2)
  1. MULTIHANCE [Suspect]
     Indication: BREAST CANCER
     Dosage: 19 ML ONCE IV
     Route: 042
     Dates: start: 20070511, end: 20070511
  2. MULTIHANCE [Suspect]
     Indication: NUCLEAR MAGNETIC RESONANCE IMAGING
     Dosage: 19 ML ONCE IV
     Route: 042
     Dates: start: 20070511, end: 20070511

REACTIONS (1)
  - ANAPHYLACTIC SHOCK [None]
